FAERS Safety Report 20644338 (Version 2)
Quarter: 2022Q4

REPORT INFORMATION
  Report Type: Spontaneous
  Country: CH (occurrence: None)
  Receive Date: 20220328
  Receipt Date: 20221007
  Transmission Date: 20230113
  Serious: Yes (Hospitalization)
  Sender: FDA-Public Use
  Company Number: 2022A128728

PATIENT
  Age: 92 Year
  Sex: Female
  Weight: 71 kg

DRUGS (21)
  1. METOPROLOL SUCCINATE [Suspect]
     Active Substance: METOPROLOL SUCCINATE
     Indication: Atrial fibrillation
     Dosage: 50 MILLIGRAM, QD
     Route: 048
  2. METOPROLOL SUCCINATE [Suspect]
     Active Substance: METOPROLOL SUCCINATE
     Indication: Hypertension
     Dosage: 50 MILLIGRAM, QD
     Route: 048
  3. QUETIAPINE [Suspect]
     Active Substance: QUETIAPINE
     Indication: Mixed anxiety and depressive disorder
     Dosage: 50 MILLIGRAM, QD (MORNING)
     Route: 065
     Dates: end: 20220131
  4. QUETIAPINE [Suspect]
     Active Substance: QUETIAPINE
     Indication: Agitation
     Dosage: 50 MILLIGRAM, QD (MORNING)
     Route: 065
     Dates: end: 20220131
  5. QUETIAPINE [Suspect]
     Active Substance: QUETIAPINE
     Indication: Mixed anxiety and depressive disorder
     Dosage: 150 MILLIGRAM, QD (EVENING)
     Route: 065
  6. QUETIAPINE [Suspect]
     Active Substance: QUETIAPINE
     Indication: Agitation
     Dosage: 150 MILLIGRAM, QD (EVENING)
     Route: 065
  7. QUETIAPINE [Suspect]
     Active Substance: QUETIAPINE
     Indication: Mixed anxiety and depressive disorder
     Dosage: 150 MILLIGRAM, QD (EVENING)
     Route: 065
     Dates: end: 20220131
  8. QUETIAPINE [Suspect]
     Active Substance: QUETIAPINE
     Indication: Agitation
     Dosage: 150 MILLIGRAM, QD (EVENING)
     Route: 065
     Dates: end: 20220131
  9. ENALAPRIL [Suspect]
     Active Substance: ENALAPRIL
     Indication: Atrial fibrillation
     Dosage: 2.5 MILLIGRAM, QD
     Route: 065
     Dates: end: 20220128
  10. ENALAPRIL [Suspect]
     Active Substance: ENALAPRIL
     Indication: Hypertension
     Dosage: 2.5 MILLIGRAM, QD
     Route: 065
     Dates: end: 20220128
  11. ALDACTONE [Suspect]
     Active Substance: SPIRONOLACTONE
     Indication: Atrial fibrillation
     Dosage: 25 MILLIGRAM, QD
     Route: 065
     Dates: end: 20220203
  12. ALDACTONE [Suspect]
     Active Substance: SPIRONOLACTONE
     Indication: Hypertension
     Dosage: 25 MILLIGRAM, QD
     Route: 065
     Dates: end: 20220203
  13. TORSEMIDE [Suspect]
     Active Substance: TORSEMIDE
     Indication: Atrial fibrillation
     Dosage: 25 MILLIGRAM, QD
     Route: 065
     Dates: end: 20220202
  14. TORSEMIDE [Suspect]
     Active Substance: TORSEMIDE
     Indication: Hypertension
     Dosage: 25 MILLIGRAM, QD
     Route: 065
     Dates: end: 20220202
  15. REMERON [Suspect]
     Active Substance: MIRTAZAPINE
     Indication: Depression
     Dosage: 30 MILLIGRAM, QD
     Route: 065
     Dates: end: 20220202
  16. REMERON [Suspect]
     Active Substance: MIRTAZAPINE
     Indication: Depression
     Dosage: 15 MILLIGRAM, QD
     Route: 065
     Dates: end: 20220202
  17. LORAZEPAM [Suspect]
     Active Substance: LORAZEPAM
     Indication: Insomnia
     Dosage: 0.5 MILLIGRAM, QD
     Route: 065
     Dates: end: 20220131
  18. MELATONIN [Concomitant]
     Active Substance: MELATONIN
     Indication: Insomnia
     Dosage: UNK
     Route: 065
  19. DAFALGAN [Concomitant]
     Active Substance: ACETAMINOPHEN
     Indication: Pain
     Dosage: UNK
     Route: 065
  20. ACENOCOUMAROL [Concomitant]
     Active Substance: ACENOCOUMAROL
     Indication: Aortic stenosis
     Dosage: UNK
     Route: 065
     Dates: end: 20220128
  21. ACENOCOUMAROL [Concomitant]
     Active Substance: ACENOCOUMAROL
     Indication: Atrial fibrillation
     Dosage: UNK
     Route: 065
     Dates: end: 20220128

REACTIONS (3)
  - Fall [Recovered/Resolved]
  - Balance disorder [Unknown]
  - Off label use [Not Recovered/Not Resolved]

NARRATIVE: CASE EVENT DATE: 20220128
